FAERS Safety Report 5152135-6 (Version None)
Quarter: 2006Q4

REPORT INFORMATION
  Report Type: 
  Country: None (occurrence: None)
  Receive Date: 20061109
  Receipt Date: 20061031
  Transmission Date: 20070319
  Serious: Yes (Other)
  Sender: FDA-Public Use
  Company Number: 2006134452

PATIENT
  Sex: Female

DRUGS (1)
  1. DEPO-PROVERA SUSPENSION, STERILE (MEDROXYPROGESTERPME ACETATE) [Suspect]
     Indication: CONTRACEPTION

REACTIONS (2)
  - ABDOMINAL DISTENSION [None]
  - PELVIC FLUID COLLECTION [None]
